FAERS Safety Report 7710812-4 (Version None)
Quarter: 2011Q3

REPORT INFORMATION
  Report Type: 
  Country: None (occurrence: None)
  Receive Date: 20110825
  Receipt Date: 20110812
  Transmission Date: 20111222
  Serious: Yes (Other)
  Sender: FDA-Public Use
  Company Number: US-BAYER-2011-073436

PATIENT
  Age: 46 Year
  Sex: Female
  Weight: 59 kg

DRUGS (3)
  1. LOVAZA [Concomitant]
  2. ASPIRIN [Suspect]
     Indication: BACK PAIN
     Dosage: 2 DF, ONCE
     Route: 048
     Dates: start: 20110811, end: 20110811
  3. GERITOL [VITAMINS NOS] [Concomitant]

REACTIONS (8)
  - VOMITING [None]
  - NAUSEA [None]
  - ABDOMINAL PAIN UPPER [None]
  - SWELLING FACE [None]
  - ERYTHEMA [None]
  - HYPERSENSITIVITY [None]
  - SYNCOPE [None]
  - PYREXIA [None]
